FAERS Safety Report 9252070 (Version 1)
Quarter: 2013Q1

REPORT INFORMATION
  Report Type: Spontaneous
  Country: US (occurrence: None)
  Receive Date: 20130305
  Receipt Date: 20130305
  Transmission Date: 20140127
  Serious: Yes (Other)
  Sender: FDA-Public Use
  Company Number: 163-21880-12071882

PATIENT
  Age: 82 Year
  Sex: Female

DRUGS (6)
  1. REVLIMID (LENALIDOMIDE) (CAPSULES) [Suspect]
     Indication: PLASMA CELL MYELOMA
     Dosage: 10 MG, 21 IN 28 D, PO
     Dates: start: 20090803
  2. ASPIRIN (ACETYLSALICYLIC ACID) [Concomitant]
  3. SYNTHROID (LEVOTHYROXINE SODIUM) [Concomitant]
  4. DEXAMETHASONE (DEXAMETHASONE) [Concomitant]
  5. VELCADE (BORTEZOMIB) [Concomitant]
  6. WARFARIN (WARFARIN) [Concomitant]

REACTIONS (1)
  - Thrombophlebitis superficial [None]
